FAERS Safety Report 6395086-1 (Version None)
Quarter: 2009Q4

REPORT INFORMATION
  Report Type: 
  Country: None (occurrence: None)
  Receive Date: 20091009
  Receipt Date: 20090828
  Transmission Date: 20100525
  Serious: Yes (Hospitalization)
  Sender: FDA-Public Use
  Company Number: GB-PFIZER INC-2009243313

PATIENT

DRUGS (1)
  1. SIMVASTATIN [Suspect]
     Dosage: 80 MG, UNK

REACTIONS (1)
  - RENAL FAILURE [None]
